FAERS Safety Report 8503977-8 (Version None)
Quarter: 2012Q3

REPORT INFORMATION
  Report Type: 
  Country: None (occurrence: None)
  Receive Date: 20120711
  Receipt Date: 20120704
  Transmission Date: 20120928
  Serious: Yes (Hospitalization)
  Sender: FDA-Public Use
  Company Number: JP-009507513-1112USA03439

PATIENT

DRUGS (1)
  1. PREMINENT TABLETS [Suspect]
     Indication: HYPERTENSION
     Dosage: UNK UNK, QD
     Route: 048
     Dates: end: 20120106

REACTIONS (4)
  - DEHYDRATION [None]
  - HYPONATRAEMIA [None]
  - METABOLIC ACIDOSIS [None]
  - GASTRIC ULCER [None]
